FAERS Safety Report 10921652 (Version 1)
Quarter: 2015Q1

REPORT INFORMATION
  Report Type: Spontaneous
  Country: ES (occurrence: None)
  Receive Date: 20150312
  Receipt Date: 20150312
  Transmission Date: 20150721
  Serious: Yes (Other)
  Sender: FDA-Public Use
  Company Number: 2277446

PATIENT
  Age: 52 Year
  Sex: Female

DRUGS (8)
  1. RALTITREXED DISODIUM [Suspect]
     Active Substance: RALTITREXED
     Indication: RECTAL ADENOCARCINOMA
     Dosage: 3 MG/ M 2 MILLIGRAM(S)/SQ. METER, CYCLICAL, UNKNOWN?
     Dates: start: 201202
  2. AVASTIN [Suspect]
     Active Substance: BEVACIZUMAB
     Indication: RECTAL ADENOCARCINOMA
     Dosage: UNKNOWN, CYCLICAL, UNKNOWN
     Dates: start: 201104
  3. FOLINIC ACID [Suspect]
     Active Substance: LEUCOVORIN
     Indication: RECTAL ADENOCARCINOMA
     Dosage: 10 CYCLES, CYCLICAL, UNKNOWN
     Dates: start: 201002, end: 201008
  4. MITOMYCIN C [Suspect]
     Active Substance: MITOMYCIN
     Indication: RECTAL ADENOCARCINOMA
     Dosage: UNKNOWN, CYCLICAL, UNKNOWN
     Dates: start: 201110
  5. CAPECITABINE. [Suspect]
     Active Substance: CAPECITABINE
     Indication: RECTAL ADENOCARCINOMA
     Dosage: 2 CYCLES, CYCLICAL, UNKNOWN
     Dates: start: 200808
  6. OXALIPLATIN. [Suspect]
     Active Substance: OXALIPLATIN
     Indication: RECTAL ADENOCARCINOMA
     Dosage: 2 CYCLES,CYCLICAL, UNKNOWN
     Dates: start: 200808
  7. IRINOTECAN HYDROCHLORIDE. [Suspect]
     Active Substance: IRINOTECAN HYDROCHLORIDE
     Indication: RECTAL ADENOCARCINOMA
     Dosage: UNKNOWN CYCLICAL, UNKNOWN
     Dates: start: 200902, end: 200906
  8. FLUOROURACIL. [Suspect]
     Active Substance: FLUOROURACIL
     Indication: RECTAL ADENOCARCINOMA
     Dosage: 10 CYCLES, CYCLICAL, UNKNOWN
     Dates: start: 201002, end: 201008

REACTIONS (8)
  - Neutropenia [None]
  - Thrombocytopenia [None]
  - Rectal haemorrhage [None]
  - Asthenia [None]
  - Disease progression [None]
  - Hypertension [None]
  - Dermatitis [None]
  - Mucosal inflammation [None]
